FAERS Safety Report 24907991 (Version 1)
Quarter: 2025Q1

REPORT INFORMATION
  Report Type: Spontaneous
  Country: IN (occurrence: IN)
  Receive Date: 20250131
  Receipt Date: 20250131
  Transmission Date: 20250409
  Serious: Yes (Other)
  Sender: NOVARTIS
  Company Number: IN-SANDOZ-SDZ2025IN005089

PATIENT
  Sex: Male

DRUGS (4)
  1. TACROLIMUS [Suspect]
     Active Substance: TACROLIMUS
     Indication: Renal transplant
     Dosage: 8 MG, QD (4 MG, BID)
     Route: 065
     Dates: start: 20180404
  2. TACROLIMUS [Suspect]
     Active Substance: TACROLIMUS
     Route: 048
     Dates: start: 20250103
  3. MYFORTIC [Suspect]
     Active Substance: MYCOPHENOLATE SODIUM
     Indication: Renal transplant
     Dosage: 720 MG, QD (360 MG, BID)
     Route: 048
     Dates: start: 20240404
  4. MYFORTIC [Suspect]
     Active Substance: MYCOPHENOLATE SODIUM
     Dosage: 1080 MG, QD (360 MG, TID)
     Route: 048
     Dates: start: 20250103

REACTIONS (1)
  - Diabetic nephropathy [Unknown]
